FAERS Safety Report 7279039-7 (Version None)
Quarter: 2011Q1

REPORT INFORMATION
  Report Type: 
  Country: None (occurrence: None)
  Receive Date: 20110207
  Receipt Date: 20110127
  Transmission Date: 20110831
  Serious: Yes (Other)
  Sender: FDA-Public Use
  Company Number: PHHY2010US76427

PATIENT
  Sex: Female
  Weight: 93 kg

DRUGS (2)
  1. FEMARA [Suspect]
     Indication: BREAST CANCER STAGE III
     Dosage: 2.5 MG, QD
     Route: 048
  2. TAMOXIFEN CITRATE [Concomitant]

REACTIONS (3)
  - DEPRESSION [None]
  - OSTEOARTHRITIS [None]
  - PAIN [None]
